FAERS Safety Report 10159067 (Version 1)
Quarter: 2014Q2

REPORT INFORMATION
  Report Type: Spontaneous
  Country: US (occurrence: US)
  Receive Date: 20140508
  Receipt Date: 20140508
  Transmission Date: 20141212
  Serious: No
  Sender: FDA-Public Use
  Company Number: US-TEVA-410573USA

PATIENT
  Sex: Female

DRUGS (2)
  1. CLARAVIS [Suspect]
     Route: 048
     Dates: start: 20130320, end: 20130410
  2. CLARAVIS [Suspect]
     Route: 048
     Dates: start: 20130417

REACTIONS (2)
  - Upper respiratory tract infection [Recovered/Resolved]
  - Drug dose omission [Recovered/Resolved]
